FAERS Safety Report 6035504-1 (Version None)
Quarter: 2009Q1

REPORT INFORMATION
  Report Type: 
  Country: None (occurrence: None)
  Receive Date: 20090113
  Receipt Date: 20090106
  Transmission Date: 20090719
  Serious: Yes (Other)
  Sender: FDA-Public Use
  Company Number: US-AVENTIS-200910146US

PATIENT
  Age: 80 Year
  Sex: Female

DRUGS (2)
  1. LOVENOX [Suspect]
     Indication: BEDRIDDEN
     Route: 058
     Dates: start: 20090105, end: 20090105
  2. LOVENOX [Suspect]
     Route: 058
     Dates: start: 20090105, end: 20090105

REACTIONS (3)
  - HAEMATOCRIT DECREASED [None]
  - SPLENIC RUPTURE [None]
  - TACHYCARDIA [None]
